FAERS Safety Report 5409284-4 (Version None)
Quarter: 2007Q3

REPORT INFORMATION
  Report Type: 
  Country: None (occurrence: None)
  Receive Date: 20070808
  Receipt Date: 20070808
  Transmission Date: 20080115
  Serious: Yes (Life-Threatening)
  Sender: FDA-Public Use
  Company Number: None

PATIENT
  Age: 28 Year
  Sex: Female
  Weight: 86 kg

DRUGS (1)
  1. DEPO-PROVERA [Suspect]
     Indication: CONTRACEPTION
     Dosage: 150MG Q3MONTHS IM AT LEAST A FEW DOSES (150 MG IM EVERY 2-3 MONTHS)
     Route: 030

REACTIONS (1)
  - PULMONARY EMBOLISM [None]
